FAERS Safety Report 7432017-7 (Version None)
Quarter: 2011Q2

REPORT INFORMATION
  Report Type: 
  Country: None (occurrence: None)
  Receive Date: 20110419
  Receipt Date: 20110419
  Transmission Date: 20111010
  Serious: No
  Sender: FDA-Public Use
  Company Number: None

PATIENT
  Age: 72 Year
  Sex: Male
  Weight: 86.1834 kg

DRUGS (1)
  1. PRAMIPEXOLE DIHYDROCHLORIDE [Suspect]
     Indication: PARKINSON'S DISEASE
     Dosage: 0.25 TID PO
     Route: 048
     Dates: start: 20110315, end: 20110408

REACTIONS (2)
  - PRODUCT SUBSTITUTION ISSUE [None]
  - HALLUCINATION [None]
